FAERS Safety Report 9050584 (Version 1)
Quarter: 2013Q1

REPORT INFORMATION
  Report Type: Spontaneous
  Country: IT (occurrence: IT)
  Receive Date: 20130205
  Receipt Date: 20130205
  Transmission Date: 20140127
  Serious: Yes (Death, Hospitalization)
  Sender: FDA-Public Use
  Company Number: IT-CELGENEUS-083-21880-13014483

PATIENT
  Age: 82 None
  Sex: Male

DRUGS (3)
  1. REVLIMID [Suspect]
     Indication: PLASMA CELL MYELOMA
     Dosage: 25 MILLIGRAM
     Route: 048
     Dates: start: 20121105, end: 20121125
  2. REVLIMID [Suspect]
     Route: 048
     Dates: start: 20111003, end: 20121125
  3. DEXAMETHASONE [Concomitant]
     Indication: PLASMA CELL MYELOMA
     Route: 065
     Dates: start: 20111003, end: 20121125

REACTIONS (2)
  - Paraparesis [Fatal]
  - Plasma cell myeloma [Fatal]
